FAERS Safety Report 5811216-1 (Version None)
Quarter: 2008Q3

REPORT INFORMATION
  Report Type: 
  Country: None (occurrence: None)
  Receive Date: 20080710
  Receipt Date: 20080704
  Transmission Date: 20090109
  Serious: Yes (Life-Threatening)
  Sender: FDA-Public Use
  Company Number: 2008070229

PATIENT
  Age: 56 Year
  Sex: Female

DRUGS (1)
  1. VOLUVEN [Suspect]
     Indication: HYPOVOLAEMIA
     Dosage: 200 ML, INTRAVENOUS DRIP
     Route: 041
     Dates: start: 20080703, end: 20080703

REACTIONS (4)
  - ANAPHYLACTIC SHOCK [None]
  - BRONCHOSPASM [None]
  - HYPOTENSION [None]
  - RASH [None]
